FAERS Safety Report 10618844 (Version 1)
Quarter: 2014Q4

REPORT INFORMATION
  Report Type: Spontaneous
  Country: IT (occurrence: IT)
  Receive Date: 20141202
  Receipt Date: 20141202
  Transmission Date: 20150529
  Serious: Yes (Other)
  Sender: FDA-Public Use
  Company Number: IT-TEVA-525921ISR

PATIENT
  Age: 54 Year
  Sex: Male

DRUGS (5)
  1. INDOMETACIN [Interacting]
     Active Substance: INDOMETHACIN
     Indication: PERICARDITIS
     Dosage: 150 MILLIGRAM DAILY;
     Route: 065
  2. AZITHROMYCIN [Suspect]
     Active Substance: AZITHROMYCIN ANHYDROUS
     Indication: INFECTION PROPHYLAXIS
     Route: 065
  3. EMTRICITABINE, TENOFOVIR [Interacting]
     Active Substance: EMTRICITABINE\TENOFOVIR
     Indication: ANTIRETROVIRAL THERAPY
     Route: 065
  4. DARUNAVIR, RITONAVIR [Interacting]
     Active Substance: DARUNAVIR\RITONAVIR
     Indication: ANTIRETROVIRAL THERAPY
     Dosage: 800/100 MG ONCE A DAY
     Route: 065
  5. COTRIMOXAZOLE [Interacting]
     Active Substance: SULFAMETHOXAZOLE\TRIMETHOPRIM
     Indication: INFECTION PROPHYLAXIS
     Route: 065

REACTIONS (3)
  - Acute kidney injury [Not Recovered/Not Resolved]
  - Hepatitis cholestatic [Recovering/Resolving]
  - Drug interaction [Unknown]
